FAERS Safety Report 7921908-6 (Version None)
Quarter: 2011Q4

REPORT INFORMATION
  Report Type: 
  Country: None (occurrence: None)
  Receive Date: 20111117
  Receipt Date: 20111108
  Transmission Date: 20120403
  Serious: Yes (Death)
  Sender: FDA-Public Use
  Company Number: DE-BAYER-2011-067954

PATIENT
  Age: 62 Year
  Sex: Female
  Weight: 90 kg

DRUGS (8)
  1. CEFUROXIME [Concomitant]
     Indication: BRONCHITIS
     Dosage: UNK
  2. SYMBICORT [Concomitant]
     Dosage: BUDESONID, FORMOTEROL 160, 4.5
  3. SPIRIVA [Concomitant]
     Dosage: 18 MG, QD
  4. AVELOX [Suspect]
     Indication: BRONCHITIS
  5. METOPROLOL TARTRATE [Concomitant]
     Dosage: 47.5 MG, BID
  6. DRONEDARONE HCL [Concomitant]
     Indication: VENTRICULAR TACHYCARDIA
     Dosage: DAILY DOSE 400 MG
  7. AVELOX [Suspect]
     Indication: CHRONIC OBSTRUCTIVE PULMONARY DISEASE
     Dosage: DOSE AS USED: 400 ONCE DAILY
     Dates: start: 20110216
  8. TORSEMIDE [Concomitant]
     Dosage: DAILY DOSE 10 MG

REACTIONS (1)
  - PULMONARY EMBOLISM [None]
